FAERS Safety Report 11373198 (Version 1)
Quarter: 2015Q3

REPORT INFORMATION
  Report Type: Spontaneous
  Country: US (occurrence: US)
  Receive Date: 20150811
  Receipt Date: 20150811
  Transmission Date: 20151125
  Serious: No
  Sender: FDA-Public Use
  Company Number: US-ELI_LILLY_AND_COMPANY-US201208000717

PATIENT
  Sex: Female

DRUGS (11)
  1. NEXIUM [Concomitant]
     Active Substance: ESOMEPRAZOLE MAGNESIUM
  2. PLAQUENIL [Concomitant]
     Active Substance: HYDROXYCHLOROQUINE SULFATE
  3. LASIX [Concomitant]
     Active Substance: FUROSEMIDE
  4. LIPITOR [Concomitant]
     Active Substance: ATORVASTATIN CALCIUM
  5. TYVASO [Concomitant]
     Active Substance: TREPROSTINIL
     Dosage: 30 UG, QID
     Route: 055
     Dates: start: 20110524, end: 20120802
  6. NORVASC [Concomitant]
     Active Substance: AMLODIPINE BESYLATE
  7. MICARDIS [Concomitant]
     Active Substance: TELMISARTAN
  8. ACTONEL [Concomitant]
     Active Substance: RISEDRONATE SODIUM
  9. ULTRACET [Concomitant]
     Active Substance: ACETAMINOPHEN\TRAMADOL HYDROCHLORIDE
  10. ADCIRCA [Suspect]
     Active Substance: TADALAFIL
     Dosage: UNK, UNKNOWN
  11. ZOLPIDEM [Concomitant]
     Active Substance: ZOLPIDEM\ZOLPIDEM TARTRATE

REACTIONS (3)
  - Nausea [Unknown]
  - Vomiting [Unknown]
  - Headache [Unknown]
